FAERS Safety Report 26062778 (Version 1)
Quarter: 2025Q4

REPORT INFORMATION
  Report Type: Spontaneous
  Country: US (occurrence: None)
  Receive Date: 20251119
  Receipt Date: 20251119
  Transmission Date: 20260118
  Serious: Yes (Hospitalization, Disabling, Other)
  Sender: ORGANON
  Company Number: US-MLMSERVICE-20251104-PI694679-00064-1

PATIENT
  Age: 35 Year
  Sex: Female

DRUGS (13)
  1. CELESTONE SOLUSPAN [Suspect]
     Active Substance: BETAMETHASONE ACETATE\BETAMETHASONE SODIUM PHOSPHATE
     Indication: Maternal therapy to enhance foetal lung maturity
     Dosage: ON HOSPITAL DAY 22 (EVERY 24 H, TOTAL OF 24 MG)
  2. CELESTONE SOLUSPAN [Suspect]
     Active Substance: BETAMETHASONE ACETATE\BETAMETHASONE SODIUM PHOSPHATE
     Indication: Nervous system disorder prophylaxis
  3. MAGNESIUM SULFATE [Suspect]
     Active Substance: MAGNESIUM SULFATE
     Indication: Maternal therapy to enhance foetal lung maturity
     Dosage: ON HOSPITAL DAY 22, 2 G/H (50 ML/H) FOR 24 HOURS WITH A STARTING BOLUS OF 6 G
  4. MAGNESIUM SULFATE [Suspect]
     Active Substance: MAGNESIUM SULFATE
     Indication: Pre-eclampsia
     Dosage: ON HOSPITAL DAY 22, 2 G/H (50 ML/H) FOR 24 HOURS WITH A STARTING BOLUS OF 6 G
  5. MAGNESIUM SULFATE [Suspect]
     Active Substance: MAGNESIUM SULFATE
     Dosage: ON HOSPITAL DAY 28, RECEIVED ADDITIONAL MAGNESIUM
  6. NIFEDIPINE [Suspect]
     Active Substance: NIFEDIPINE
     Indication: Pre-eclampsia
     Dosage: ON HOSPITAL DAY 28
  7. NIFEDIPINE [Suspect]
     Active Substance: NIFEDIPINE
     Dosage: 60 MILLIGRAM, BID
  8. OLANZAPINE [Suspect]
     Active Substance: OLANZAPINE
     Indication: Schizophrenia
     Dosage: AT BEDTIME ON HOSPITAL DAY 1
  9. OLANZAPINE [Suspect]
     Active Substance: OLANZAPINE
     Indication: Psychiatric decompensation
     Dosage: ON HOSPITAL DAY (HD) 2
  10. OLANZAPINE [Suspect]
     Active Substance: OLANZAPINE
     Dosage: ON HOSPITAL DAY (HD) 4 FOR THE REMAINDER OF THE PSYCHIATRIC HOSPITALIZATION, HD 20.
  11. OLANZAPINE [Suspect]
     Active Substance: OLANZAPINE
     Dosage: INCREASED TO 5 MG IN THE MORNING AND 20 MG AT BEDTIME
  12. OLANZAPINE [Suspect]
     Active Substance: OLANZAPINE
     Dosage: TAPERED TO 15 MG AT BEDTIME
  13. ARIPIPRAZOLE LAUROXIL [Suspect]
     Active Substance: ARIPIPRAZOLE LAUROXIL
     Indication: Schizophrenia
     Dosage: UNK

REACTIONS (3)
  - Substance-induced psychotic disorder [Recovering/Resolving]
  - Maternal exposure during pregnancy [Unknown]
  - Product use in unapproved indication [Unknown]
